FAERS Safety Report 20317307 (Version 20)
Quarter: 2022Q4

REPORT INFORMATION
  Report Type: Report from Study
  Country: KR (occurrence: None)
  Receive Date: 20220110
  Receipt Date: 20221206
  Transmission Date: 20230113
  Serious: Yes (Hospitalization)
  Sender: FDA-Public Use
  Company Number: KR-Eisai Medical Research-EC-2022-106468

PATIENT
  Age: 73 Year
  Sex: Male
  Weight: 70.8 kg

DRUGS (23)
  1. LENVATINIB [Suspect]
     Active Substance: LENVATINIB
     Indication: Oesophageal adenocarcinoma
     Route: 048
     Dates: start: 20210929, end: 20211220
  2. LENVATINIB [Suspect]
     Active Substance: LENVATINIB
     Indication: Adenocarcinoma gastric
  3. PEMBROLIZUMAB [Suspect]
     Active Substance: PEMBROLIZUMAB
     Indication: Oesophageal adenocarcinoma
     Route: 041
     Dates: start: 20210929, end: 20211109
  4. PEMBROLIZUMAB [Suspect]
     Active Substance: PEMBROLIZUMAB
     Indication: Adenocarcinoma gastric
     Route: 041
     Dates: start: 20220111, end: 20220111
  5. OXALIPLATIN [Suspect]
     Active Substance: OXALIPLATIN
     Indication: Oesophageal adenocarcinoma
     Route: 041
     Dates: start: 20210929, end: 20211130
  6. OXALIPLATIN [Suspect]
     Active Substance: OXALIPLATIN
     Indication: Adenocarcinoma gastric
  7. CAPECITABINE [Suspect]
     Active Substance: CAPECITABINE
     Indication: Oesophageal adenocarcinoma
     Dosage: FOR 14 DAYS Q3W
     Route: 048
     Dates: start: 20210929, end: 20211214
  8. CAPECITABINE [Suspect]
     Active Substance: CAPECITABINE
     Indication: Adenocarcinoma gastric
  9. LOSARTAN MEPHA PLUS [Concomitant]
     Dates: start: 201601, end: 20220203
  10. SUGAMET XR [Concomitant]
     Dates: start: 201901
  11. FERROUS SULFATE [Concomitant]
     Active Substance: FERROUS SULFATE
     Dates: start: 20210701
  12. SILENOR [Concomitant]
     Active Substance: DOXEPIN HYDROCHLORIDE
     Dates: start: 20210801
  13. FAMOTIDINE [Concomitant]
     Active Substance: FAMOTIDINE
     Dates: start: 20210930, end: 20220114
  14. DEXAMETHASONE [Concomitant]
     Active Substance: DEXAMETHASONE
     Dates: start: 20210930, end: 20220114
  15. LOPERAMIDE [Concomitant]
     Active Substance: LOPERAMIDE
     Dates: start: 20211012, end: 20211230
  16. DESOWEN [Concomitant]
     Active Substance: DESONIDE
     Dates: start: 20211012
  17. MONTMORILLONITE [Concomitant]
     Active Substance: MONTMORILLONITE
     Dates: start: 20211012, end: 20211230
  18. TRIGEL [Concomitant]
     Dates: start: 20211130, end: 20211220
  19. TEGOPRAZAN [Concomitant]
     Active Substance: TEGOPRAZAN
     Dates: start: 20211130, end: 20211220
  20. SODIUM BICARBONATE [Concomitant]
     Active Substance: SODIUM BICARBONATE
     Dates: start: 20211130
  21. ALVERIX [Concomitant]
     Dates: start: 20211221, end: 20220101
  22. EASYEF [Concomitant]
     Dates: start: 20211221, end: 20220124
  23. POLIDERIBOTIDE [Concomitant]
     Dates: start: 20211221, end: 20211221

REACTIONS (1)
  - Gastric perforation [Recovered/Resolved]

NARRATIVE: CASE EVENT DATE: 20211222
